FAERS Safety Report 25322165 (Version 1)
Quarter: 2025Q2

REPORT INFORMATION
  Report Type: Spontaneous
  Country: GB (occurrence: GB)
  Receive Date: 20250516
  Receipt Date: 20250516
  Transmission Date: 20250716
  Serious: No
  Sender: ALKEM
  Company Number: None

PATIENT
  Age: 86 Year
  Sex: Female

DRUGS (1)
  1. RILUZOLE [Suspect]
     Active Substance: RILUZOLE
     Indication: Product used for unknown indication
     Route: 065

REACTIONS (1)
  - Oral candidiasis [Not Recovered/Not Resolved]
